FAERS Safety Report 8446038-9 (Version None)
Quarter: 2012Q2

REPORT INFORMATION
  Report Type: 
  Country: None (occurrence: None)
  Receive Date: 20120323
  Receipt Date: 20110920
  Transmission Date: 20120825
  Serious: Yes (Other)
  Sender: FDA-Public Use
  Company Number: 163-21880-11063849

PATIENT
  Age: 72 Year
  Sex: Male

DRUGS (1)
  1. REVLIMID [Suspect]
     Indication: WALDENSTROM'S MACROGLOBULINAEMIA
     Dosage: 15 MG, DAILY X 14 DAYS, PO
     Route: 048
     Dates: start: 20110601

REACTIONS (3)
  - COUGH [None]
  - PANCYTOPENIA [None]
  - FATIGUE [None]
